FAERS Safety Report 17478068 (Version 2)
Quarter: 2020Q1

REPORT INFORMATION
  Report Type: Spontaneous
  Country: US (occurrence: US)
  Receive Date: 20200229
  Receipt Date: 20200331
  Transmission Date: 20200409
  Serious: Yes (Hospitalization)
  Sender: FDA-Public Use
  Company Number: US-TEVA-2020-US-1190239

PATIENT
  Sex: Male
  Weight: 117 kg

DRUGS (14)
  1. KETAMINE [Suspect]
     Active Substance: KETAMINE
     Indication: WITHDRAWAL SYNDROME
     Dosage: ON DAY 3 OF HOSPITALISATION, HIS KETAMINE DOSE INCREASED TO 50MG/HOUR
     Route: 041
  2. METHADONE [Suspect]
     Active Substance: METHADONE HYDROCHLORIDE
     Indication: COMPLEX REGIONAL PAIN SYNDROME
     Dosage: 90 MILLIGRAM DAILY;
     Route: 048
  3. KETAMINE [Suspect]
     Active Substance: KETAMINE
     Indication: WITHDRAWAL SYNDROME
     Dosage: ON DAY 4 OF HOSPITALISATION
     Route: 041
  4. OXYCODONE [Suspect]
     Active Substance: OXYCODONE
     Indication: WITHDRAWAL SYNDROME
     Dosage: ADMINISTERED AS NEEDED; IMMEDIATE RELEASE
     Route: 065
  5. HYDROMORPHONE [Suspect]
     Active Substance: HYDROMORPHONE
     Indication: ANALGESIC THERAPY
     Dosage: ON DAY 1
     Route: 042
  6. KETAMINE [Suspect]
     Active Substance: KETAMINE
     Indication: WITHDRAWAL SYNDROME
     Dosage: 240 MILLIGRAM DAILY; ADMINISTERED AS CONTINUOUS INFUSION
     Route: 041
  7. PREGABALIN. [Concomitant]
     Active Substance: PREGABALIN
     Route: 065
  8. HYDROMORPHONE [Suspect]
     Active Substance: HYDROMORPHONE
     Indication: COMPLEX REGIONAL PAIN SYNDROME
     Dosage: AS NEEDED
     Route: 048
  9. KETAMINE [Suspect]
     Active Substance: KETAMINE
     Indication: WITHDRAWAL SYNDROME
     Route: 041
  10. LORAZEPAM. [Concomitant]
     Active Substance: LORAZEPAM
     Indication: HALLUCINATION, VISUAL
  11. IBUPROFEN. [Concomitant]
     Active Substance: IBUPROFEN
     Route: 065
  12. CLONIDINE. [Concomitant]
     Active Substance: CLONIDINE
     Indication: PSYCHOTIC SYMPTOM
     Route: 065
  13. LORAZEPAM. [Concomitant]
     Active Substance: LORAZEPAM
     Indication: PSYCHOTIC SYMPTOM
     Dosage: 2 MILLIGRAM DAILY;
     Route: 065
  14. ACETAMINOPHEN. [Concomitant]
     Active Substance: ACETAMINOPHEN
     Route: 065

REACTIONS (9)
  - Withdrawal syndrome [Recovering/Resolving]
  - Hallucination, visual [Recovering/Resolving]
  - Vision blurred [Recovering/Resolving]
  - Hyperhidrosis [Recovered/Resolved]
  - Nausea [Recovering/Resolving]
  - Hyperaesthesia [Recovering/Resolving]
  - Anxiety [Recovered/Resolved]
  - Hallucination, auditory [Recovering/Resolving]
  - Vomiting [Recovering/Resolving]
